FAERS Safety Report 5676008-5 (Version None)
Quarter: 2008Q1

REPORT INFORMATION
  Report Type: 
  Country: None (occurrence: None)
  Receive Date: 20080318
  Receipt Date: 20080307
  Transmission Date: 20080703
  Serious: Yes (Hospitalization)
  Sender: FDA-Public Use
  Company Number: 024884

PATIENT
  Sex: Male
  Weight: 95.2 kg

DRUGS (9)
  1. METOCLOPRAMIDE [Suspect]
     Indication: IMPAIRED GASTRIC EMPTYING
     Dosage: 7 TABLET, QD, ORAL
     Route: 048
     Dates: start: 20030101
  2. PROMETHAZINE [Concomitant]
  3. TRAZODONE HCL [Concomitant]
  4. WELLBUTRIN [Concomitant]
  5. AMITIZA [Concomitant]
  6. CLONAZEPAM [Concomitant]
  7. NEXIUM [Concomitant]
  8. GABAPENTIN [Concomitant]
  9. ZOFRAN [Concomitant]

REACTIONS (4)
  - ANXIETY [None]
  - DEPRESSION [None]
  - IMPAIRED GASTRIC EMPTYING [None]
  - INSOMNIA [None]
